FAERS Safety Report 18508747 (Version 1)
Quarter: 2020Q4

REPORT INFORMATION
  Report Type: Spontaneous
  Country: HR (occurrence: HR)
  Receive Date: 20201117
  Receipt Date: 20201117
  Transmission Date: 20210114
  Serious: Yes (Disabling, Other)
  Sender: FDA-Public Use
  Company Number: HR-SA-2020SA317784

PATIENT

DRUGS (16)
  1. RITUXIMAB. [Concomitant]
     Active Substance: RITUXIMAB
     Indication: IMMUNOMODULATORY THERAPY
     Dosage: 420 MG, Q4W
     Route: 042
  2. IMMUNOGLOBULINS NOS [Concomitant]
     Active Substance: IMMUNE GLOBULIN NOS
     Indication: IMMUNOMODULATORY THERAPY
     Dosage: 12.5 G, Q4W
     Route: 042
  3. MYOZYME [Suspect]
     Active Substance: ALGLUCOSIDASE ALFA
     Indication: GLYCOGEN STORAGE DISEASE TYPE II
     Dosage: 20 MG/KG, QOW
     Route: 065
     Dates: start: 2011, end: 2019
  4. METOTREXATE [Concomitant]
     Active Substance: METHOTREXATE SODIUM
     Dosage: 1.2 MG/KG (0.4X3 DAYS), QOW
     Route: 065
  5. RAPAMYCIN [Concomitant]
     Active Substance: SIROLIMUS
     Indication: IMMUNOSUPPRESSANT DRUG THERAPY
     Dosage: 0.5 MG, QD
     Route: 065
  6. RITUXIMAB. [Concomitant]
     Active Substance: RITUXIMAB
     Dosage: 100 MG/M2, QM FOR NEXT THREE MONTHS
     Route: 042
  7. MYOZYME [Suspect]
     Active Substance: ALGLUCOSIDASE ALFA
     Dosage: 20 MG/KG, QW
     Route: 065
     Dates: start: 2019
  8. RITUXIMAB. [Concomitant]
     Active Substance: RITUXIMAB
     Dosage: 325 MG/M2, Q4W
     Route: 042
  9. RITUXIMAB. [Concomitant]
     Active Substance: RITUXIMAB
     Dosage: 200 MG/M2, QM FOR THREE MONTHS
     Route: 042
  10. AZITHROMYCIN ANHYDROUS. [Concomitant]
     Active Substance: AZITHROMYCIN ANHYDROUS
     Indication: PROPHYLAXIS
     Dosage: 300 MG (DURING WINTER SEASON), TIW
     Route: 065
  11. MYOZYME [Suspect]
     Active Substance: ALGLUCOSIDASE ALFA
     Dosage: 20.3 MG/KG (650 MG/32 KGS), QOW
     Route: 065
     Dates: start: 2020
  12. RITUXIMAB. [Concomitant]
     Active Substance: RITUXIMAB
     Dosage: 325 MG/M2, QM FOR AN YEAR
     Route: 042
  13. METOTREXATE [Concomitant]
     Active Substance: METHOTREXATE SODIUM
     Dosage: 04 MG/KG, QW
     Route: 065
  14. RITUXIMAB. [Concomitant]
     Active Substance: RITUXIMAB
     Dosage: 100 MG/M2, Q2M
     Route: 042
  15. METOTREXATE [Concomitant]
     Active Substance: METHOTREXATE SODIUM
     Indication: IMMUNOMODULATORY THERAPY
     Dosage: 12.5 MG, QW
     Route: 058
  16. VITAMIN D [VITAMIN D NOS] [Concomitant]
     Active Substance: VITAMIN D NOS
     Dosage: 2000 IU, QD
     Route: 065

REACTIONS (36)
  - Dysarthria [Unknown]
  - Strabismus [Unknown]
  - Speech disorder developmental [Unknown]
  - Hypersensitivity [Unknown]
  - Wheelchair user [Unknown]
  - Pain in extremity [Unknown]
  - Pulmonary function test decreased [Unknown]
  - White matter lesion [Unknown]
  - Drug specific antibody present [Unknown]
  - Drug ineffective [Unknown]
  - Intellectual disability [Unknown]
  - Anaphylactic reaction [Unknown]
  - Respiratory disorder [Unknown]
  - Nocturia [Unknown]
  - Tachycardia [Unknown]
  - Muscle hypertrophy [Unknown]
  - Gait disturbance [Unknown]
  - Dysstasia [Unknown]
  - Dyspnoea [Unknown]
  - Respiratory tract infection [Recovering/Resolving]
  - Deafness [Unknown]
  - General physical health deterioration [Unknown]
  - Scoliosis [Unknown]
  - Flushing [Unknown]
  - Disease progression [Unknown]
  - Bladder dysfunction [Unknown]
  - Muscular weakness [Unknown]
  - Myopathy [Unknown]
  - Overdose [Unknown]
  - Stress urinary incontinence [Unknown]
  - Muscle atrophy [Unknown]
  - Condition aggravated [Unknown]
  - Mobility decreased [Unknown]
  - Peroneal nerve palsy [Unknown]
  - Spirometry abnormal [Unknown]
  - Blood creatine phosphokinase increased [Unknown]

NARRATIVE: CASE EVENT DATE: 2013
